FAERS Safety Report 9330618 (Version 2)
Quarter: 2013Q2

REPORT INFORMATION
  Report Type: Report from Study
  Country: US (occurrence: US)
  Receive Date: 20130605
  Receipt Date: 20130610
  Transmission Date: 20140414
  Serious: Yes (Death)
  Sender: FDA-Public Use
  Company Number: PHEH2013US012150

PATIENT
  Age: 87 Year
  Sex: Male

DRUGS (1)
  1. GLEEVEC [Suspect]
     Indication: CHRONIC MYELOID LEUKAEMIA
     Dosage: 400 MG, DAILY
     Route: 048

REACTIONS (6)
  - Septic shock [Fatal]
  - Urinary tract infection [Fatal]
  - Encephalopathy [Fatal]
  - Pneumonia [Fatal]
  - Hypoxia [Fatal]
  - Acute respiratory failure [Fatal]
